FAERS Safety Report 21023414 (Version 1)
Quarter: 2022Q2

REPORT INFORMATION
  Report Type: Spontaneous
  Country: US (occurrence: US)
  Receive Date: 20220629
  Receipt Date: 20220629
  Transmission Date: 20220721
  Serious: No
  Sender: FDA-Public Use
  Company Number: US-SA-SAC20220628000989

PATIENT
  Age: 39 Year
  Sex: Female

DRUGS (5)
  1. ALLEGRA-D [Suspect]
     Active Substance: FEXOFENADINE HYDROCHLORIDE\PSEUDOEPHEDRINE HYDROCHLORIDE
  2. VITAMIN D3 [Concomitant]
     Active Substance: CHOLECALCIFEROL
  3. NORETHINDRONE [Concomitant]
     Active Substance: NORETHINDRONE
  4. MUPIROCIN [Concomitant]
     Active Substance: MUPIROCIN
  5. COLACE [Concomitant]
     Active Substance: DOCUSATE SODIUM

REACTIONS (1)
  - Drug hypersensitivity [Unknown]
